FAERS Safety Report 20126468 (Version 1)
Quarter: 2021Q4

REPORT INFORMATION
  Report Type: Spontaneous
  Country: FR (occurrence: FR)
  Receive Date: 20211129
  Receipt Date: 20211129
  Transmission Date: 20220303
  Serious: Yes (Death)
  Sender: FDA-Public Use
  Company Number: None

PATIENT
  Age: 51 Year
  Sex: Female
  Weight: 54 kg

DRUGS (2)
  1. GEMZAR [Suspect]
     Active Substance: GEMCITABINE HYDROCHLORIDE
     Indication: Breast cancer
     Dosage: UNK UNK, CYCLICAL
     Route: 042
     Dates: start: 202105, end: 202107
  2. TRODELVY [Suspect]
     Active Substance: SACITUZUMAB GOVITECAN-HZIY
     Indication: Breast cancer
     Dosage: UNK, CYCLICAL
     Route: 042
     Dates: start: 20210721, end: 20210908

REACTIONS (3)
  - Hepatic fibrosis [Fatal]
  - Cholestasis [Fatal]
  - Off label use [Unknown]

NARRATIVE: CASE EVENT DATE: 20210809
